FAERS Safety Report 21313309 (Version 1)
Quarter: 2022Q3

REPORT INFORMATION
  Report Type: Spontaneous
  Country: US (occurrence: US)
  Receive Date: 20220909
  Receipt Date: 20220909
  Transmission Date: 20221027
  Serious: No
  Sender: FDA-Public Use
  Company Number: US-ASTELLAS-2021US041323

PATIENT
  Sex: Male

DRUGS (2)
  1. ENZALUTAMIDE [Suspect]
     Active Substance: ENZALUTAMIDE
     Indication: Metastatic neoplasm
     Dosage: UNK UNK, UNKNOWN FREQ.
     Route: 065
  2. ABIRATERONE [Concomitant]
     Active Substance: ABIRATERONE
     Indication: Metastatic neoplasm
     Dosage: UNK UNK, UNKNOWN FREQ.
     Route: 065

REACTIONS (1)
  - Rash [Unknown]
